FAERS Safety Report 24253155 (Version 1)
Quarter: 2024Q3

REPORT INFORMATION
  Report Type: Spontaneous
  Country: SG (occurrence: SG)
  Receive Date: 20240827
  Receipt Date: 20240827
  Transmission Date: 20241016
  Serious: Yes (Hospitalization)
  Sender: MYLAN
  Company Number: SG-MYLANLABS-2024M1077957

PATIENT
  Age: 41 Year
  Sex: Female

DRUGS (1)
  1. ATORVASTATIN [Suspect]
     Active Substance: ATORVASTATIN
     Indication: Product used for unknown indication
     Dosage: 40 MILLIGRAM, QD (40 MILLIGRAMS 1 TIME DAILY)
     Route: 065
     Dates: start: 20240708

REACTIONS (3)
  - Muscle necrosis [Not Recovered/Not Resolved]
  - Autoantibody positive [Not Recovered/Not Resolved]
  - Myositis [Not Recovered/Not Resolved]

NARRATIVE: CASE EVENT DATE: 20240715
